FAERS Safety Report 20350447 (Version 6)
Quarter: 2022Q3

REPORT INFORMATION
  Report Type: Spontaneous
  Country: US (occurrence: US)
  Receive Date: 20220119
  Receipt Date: 20220923
  Transmission Date: 20221027
  Serious: Yes (Other)
  Sender: FDA-Public Use
  Company Number: US-PFIZER INC-202101772375

PATIENT
  Age: 52 Year
  Sex: Female

DRUGS (4)
  1. INLYTA [Suspect]
     Active Substance: AXITINIB
     Dosage: 3 MG, 2X/DAY
     Dates: start: 20211129
  2. INLYTA [Suspect]
     Active Substance: AXITINIB
     Dosage: 5 MG
     Dates: start: 20211203
  3. INLYTA [Suspect]
     Active Substance: AXITINIB
     Dosage: 1 MG
     Dates: start: 20211230
  4. INLYTA [Suspect]
     Active Substance: AXITINIB
     Dosage: 1 MG
     Dates: start: 20220105

REACTIONS (8)
  - Neuropathy peripheral [Recovering/Resolving]
  - Neoplasm progression [Unknown]
  - Nausea [Recovered/Resolved]
  - Dry mouth [Unknown]
  - Feeding disorder [Unknown]
  - Skin fissures [Unknown]
  - Hypertension [Unknown]
  - Erythema [Unknown]

NARRATIVE: CASE EVENT DATE: 20211203
